FAERS Safety Report 25776637 (Version 1)
Quarter: 2025Q3

REPORT INFORMATION
  Report Type: Spontaneous
  Country: US (occurrence: US)
  Receive Date: 20250909
  Receipt Date: 20250909
  Transmission Date: 20251020
  Serious: No
  Sender: DOMPE FARMACEUTICI
  Company Number: US-FARMAPROD-202503-0801

PATIENT
  Age: 86 Year
  Sex: Male

DRUGS (28)
  1. OXERVATE [Suspect]
     Active Substance: CENEGERMIN-BKBJ
     Indication: Neurotrophic keratopathy
     Route: 047
     Dates: start: 20230801
  2. OXERVATE [Suspect]
     Active Substance: CENEGERMIN-BKBJ
     Route: 047
     Dates: start: 20250211, end: 20250305
  3. ESCITALOPRAM OXALATE [Concomitant]
     Active Substance: ESCITALOPRAM OXALATE
  4. BROMFENAC;PREDNISOLONE [Concomitant]
  5. OMEPRAZOLE [Concomitant]
     Active Substance: OMEPRAZOLE
  6. AMLODIPINE BESYLATE [Concomitant]
     Active Substance: AMLODIPINE BESYLATE
  7. VITAMINS [Concomitant]
     Active Substance: VITAMINS
  8. METAMUCIL THERAPY FOR REGULARITY [Concomitant]
     Active Substance: PSYLLIUM HUSK
  9. OFLOXACIN [Concomitant]
     Active Substance: OFLOXACIN
  10. ASPIRIN [Concomitant]
     Active Substance: ASPIRIN
  11. DOXYCYCLINE HYCLATE [Concomitant]
     Active Substance: DOXYCYCLINE HYCLATE
  12. FINASTERIDE [Concomitant]
     Active Substance: FINASTERIDE
  13. ATENOLOL [Concomitant]
     Active Substance: ATENOLOL
  14. ALFUZOSIN HYDROCHLORIDE [Concomitant]
     Active Substance: ALFUZOSIN HYDROCHLORIDE
  15. DORZOLAMIDE HYDROCHLORIDE [Concomitant]
     Active Substance: DORZOLAMIDE HYDROCHLORIDE
  16. ALLOPURINOL [Concomitant]
     Active Substance: ALLOPURINOL
  17. ATORVASTATIN CALCIUM [Concomitant]
     Active Substance: ATORVASTATIN CALCIUM
  18. ALPHAGAN P [Concomitant]
     Active Substance: BRIMONIDINE TARTRATE
  19. LOTEMAX [Concomitant]
     Active Substance: LOTEPREDNOL ETABONATE
  20. TRIAMCINOLONE ACETONIDE [Concomitant]
     Active Substance: TRIAMCINOLONE ACETONIDE
  21. VOLTAREN ARTHRITIS PAIN [Concomitant]
     Active Substance: DICLOFENAC SODIUM
  22. ENSURE COMPACT [Concomitant]
  23. CLARITIN [Concomitant]
     Active Substance: LORATADINE
  24. MONTELUKAST SODIUM [Concomitant]
     Active Substance: MONTELUKAST SODIUM
  25. REFRESH CELLUVISC [Concomitant]
     Active Substance: CARBOXYMETHYLCELLULOSE SODIUM
  26. AZELASTINE [Concomitant]
     Active Substance: AZELASTINE
     Indication: Hypersensitivity
  27. BRIMONIDINE [Concomitant]
     Active Substance: BRIMONIDINE TARTRATE
  28. DORZOLAMIDE AND TIMOLOL [Concomitant]
     Active Substance: DORZOLAMIDE HYDROCHLORIDE\TIMOLOL MALEATE

REACTIONS (1)
  - Intraocular pressure increased [Not Recovered/Not Resolved]

NARRATIVE: CASE EVENT DATE: 20250228
